FAERS Safety Report 6468867-3 (Version None)
Quarter: 2009Q4

REPORT INFORMATION
  Report Type: 
  Country: None (occurrence: None)
  Receive Date: 20091203
  Receipt Date: 20090615
  Transmission Date: 20100525
  Serious: Yes (Hospitalization, Other)
  Sender: FDA-Public Use
  Company Number: US-ELI_LILLY_AND_COMPANY-US200608000498

PATIENT
  Sex: Male
  Weight: 119.73 kg

DRUGS (14)
  1. ZYPREXA ZYDIS [Suspect]
     Indication: SCHIZOAFFECTIVE DISORDER
     Dosage: 10 MG, UNK
     Dates: start: 20030101
  2. ZYPREXA ZYDIS [Suspect]
     Dosage: 20 MG, EACH EVENING
     Dates: start: 20040210, end: 20041201
  3. ZYPREXA ZYDIS [Suspect]
     Dosage: 30 MG, EACH EVENING
     Route: 048
  4. ZYPREXA ZYDIS [Suspect]
     Dosage: 10 MG, UNK
     Dates: start: 20040324
  5. ZYPREXA ZYDIS [Suspect]
     Dosage: 15 MG, EACH EVENING
     Route: 048
  6. RISPERIDONE [Concomitant]
     Dosage: 50 MG, UNKNOWN
     Route: 030
     Dates: start: 20040101, end: 20050101
  7. RISPERIDONE [Concomitant]
     Dosage: 3 MG, 2/D
     Route: 048
  8. RISPERIDONE [Concomitant]
     Dosage: 25 MG, UNK
     Route: 030
  9. WELLBUTRIN [Concomitant]
     Dosage: 150 MG, 2/D
     Dates: start: 20040101
  10. CELEXA [Concomitant]
     Dosage: UNK, UNKNOWN
     Dates: start: 20040101
  11. LORAZEPAM [Concomitant]
     Indication: AGITATION
     Dosage: 2 MG, UNK
     Route: 048
  12. LORAZEPAM [Concomitant]
     Dosage: 2 MG, UNK
     Route: 030
  13. HALOPERIDOL [Concomitant]
     Indication: AGITATION
     Dosage: 5 MG, UNK
     Route: 048
  14. HALOPERIDOL [Concomitant]
     Dosage: 5 MG, UNK
     Route: 030

REACTIONS (18)
  - ALANINE AMINOTRANSFERASE INCREASED [None]
  - ASPARTATE AMINOTRANSFERASE INCREASED [None]
  - BLOOD ALKALINE PHOSPHATASE INCREASED [None]
  - BLOOD CHOLESTEROL INCREASED [None]
  - BLOOD GLUCOSE ABNORMAL [None]
  - BLOOD TRIGLYCERIDES INCREASED [None]
  - DRUG INEFFECTIVE [None]
  - HAEMATOCHEZIA [None]
  - HYPERGLYCAEMIA [None]
  - HYPERPHAGIA [None]
  - HYPERTENSION [None]
  - HYPOGLYCAEMIA [None]
  - LYMPHOCYTE COUNT INCREASED [None]
  - OVERDOSE [None]
  - POLYDIPSIA [None]
  - POLYURIA [None]
  - TYPE 2 DIABETES MELLITUS [None]
  - WEIGHT INCREASED [None]
